FAERS Safety Report 7757262-2 (Version None)
Quarter: 2011Q3

REPORT INFORMATION
  Report Type: 
  Country: None (occurrence: None)
  Receive Date: 20110916
  Receipt Date: 20110914
  Transmission Date: 20111222
  Serious: Yes (Hospitalization)
  Sender: FDA-Public Use
  Company Number: JP-EISAI INC-E2020-09733-SPO-JP

PATIENT
  Age: 75 Year
  Sex: Male
  Weight: 58.6 kg

DRUGS (6)
  1. SEROQUEL [Concomitant]
     Route: 048
     Dates: start: 20110805, end: 20110813
  2. SEROQUEL [Concomitant]
     Route: 048
     Dates: start: 20110814, end: 20110817
  3. ASPIRIN [Concomitant]
     Route: 048
     Dates: start: 20091101
  4. ROZEREM [Concomitant]
     Route: 048
     Dates: start: 20110805
  5. REBAMIPIDE [Concomitant]
     Route: 048
     Dates: start: 20091101
  6. ARICEPT [Suspect]
     Indication: DEMENTIA ALZHEIMER'S TYPE
     Route: 048
     Dates: start: 20091101, end: 20110820

REACTIONS (1)
  - TORTICOLLIS [None]
